FAERS Safety Report 9148564 (Version 1)
Quarter: 2013Q1

REPORT INFORMATION
  Report Type: Spontaneous
  Country: NL (occurrence: NL)
  Receive Date: 20130308
  Receipt Date: 20130308
  Transmission Date: 20140127
  Serious: Yes (Other)
  Sender: FDA-Public Use
  Company Number: NL-JNJFOC-20130301858

PATIENT
  Age: 73 Year
  Sex: Female

DRUGS (4)
  1. ZALDIAR [Suspect]
     Indication: MYALGIA
     Dosage: 3-4 DF PER DAY
     Route: 048
     Dates: start: 20130215
  2. PARACETAMOL [Concomitant]
     Indication: PRODUCT USED FOR UNKNOWN INDICATION
     Route: 048
  3. HOMEOPATIC PREPARATION [Concomitant]
     Indication: MYALGIA
     Route: 061
  4. HOMEOPATHIC MEDICATION (NOS) [Concomitant]
     Indication: CONSTIPATION
     Route: 048

REACTIONS (1)
  - Tumour haemorrhage [Recovering/Resolving]
